FAERS Safety Report 6666708-2 (Version None)
Quarter: 2010Q1

REPORT INFORMATION
  Report Type: 
  Country: None (occurrence: None)
  Receive Date: 20100331
  Receipt Date: 20100323
  Transmission Date: 20100710
  Serious: Yes (Other)
  Sender: FDA-Public Use
  Company Number: 543138

PATIENT
  Age: 61 Year
  Sex: Male

DRUGS (5)
  1. MORPHINE SULFATE [Suspect]
     Indication: RESPIRATORY DISTRESS
     Dosage: TITRATED UP TO 65 MG/HR
  2. HYDROMORPHONE HYDROCHLORIDE [Suspect]
     Indication: RESPIRATORY DISTRESS
     Dosage: TITRATED UP TO 50 MG/HR
  3. (OXYGEN) [Concomitant]
  4. LORAZEPAM [Concomitant]
  5. HALOPERIDOL DECANOATE [Concomitant]

REACTIONS (4)
  - APNOEIC ATTACK [None]
  - CHEYNE-STOKES RESPIRATION [None]
  - IATROGENIC INJURY [None]
  - SEDATION [None]
